FAERS Safety Report 12824254 (Version 2)
Quarter: 2016Q4

REPORT INFORMATION
  Report Type: Spontaneous
  Country: AT (occurrence: AT)
  Receive Date: 20161006
  Receipt Date: 20161109
  Transmission Date: 20170207
  Serious: Yes (Life-Threatening)
  Sender: FDA-Public Use
  Company Number: AT-NOVOPROD-512233

PATIENT
  Age: 72 Year
  Sex: Male
  Weight: 83 kg

DRUGS (4)
  1. VICTOZA [Suspect]
     Active Substance: LIRAGLUTIDE
     Dosage: 1.2 MG
     Route: 065
     Dates: start: 201512, end: 20160814
  2. DIAMICRON [Concomitant]
     Active Substance: GLICLAZIDE
     Dosage: (1-0-0)QD
     Route: 065
  3. VICTOZA [Suspect]
     Active Substance: LIRAGLUTIDE
     Indication: PRODUCT USED FOR UNKNOWN INDICATION
     Dosage: 0.6 MG
     Route: 065
     Dates: start: 201511, end: 201512
  4. METFORMIN [Concomitant]
     Active Substance: METFORMIN HYDROCHLORIDE
     Dosage: 1000 MG, TID
     Route: 065

REACTIONS (1)
  - Lung adenocarcinoma metastatic [Not Recovered/Not Resolved]

NARRATIVE: CASE EVENT DATE: 201608
